FAERS Safety Report 9458000 (Version 1)
Quarter: 2013Q3

REPORT INFORMATION
  Report Type: Spontaneous
  Country: BR (occurrence: BR)
  Receive Date: 20130814
  Receipt Date: 20130814
  Transmission Date: 20140515
  Serious: Yes (Death, Other)
  Sender: FDA-Public Use
  Company Number: BR-JNJFOC-20130806267

PATIENT
  Age: 70 Year
  Sex: Male

DRUGS (2)
  1. XARELTO [Suspect]
     Indication: ORTHOPAEDIC PROCEDURE
     Route: 048
  2. XARELTO [Suspect]
     Indication: THROMBOSIS PROPHYLAXIS
     Route: 048

REACTIONS (3)
  - Death [Fatal]
  - Drug-induced liver injury [Unknown]
  - Off label use [Unknown]
